FAERS Safety Report 23846041 (Version 2)
Quarter: 2024Q3

REPORT INFORMATION
  Report Type: Spontaneous
  Country: PK (occurrence: PK)
  Receive Date: 20240512
  Receipt Date: 20240710
  Transmission Date: 20241016
  Serious: Yes (Other)
  Sender: AMGEN
  Company Number: PK-PFIZER INC-PV202300203679

PATIENT
  Age: 53 Year
  Sex: Female
  Weight: 74 kg

DRUGS (12)
  1. ENBREL [Suspect]
     Active Substance: BENZYL ALCOHOL\ETANERCEPT
     Indication: Rheumatoid arthritis
     Dosage: 50 MG, WEEKLY
     Route: 058
     Dates: start: 20230721
  2. DELTACORTRIL [Concomitant]
     Active Substance: PREDNISOLONE
     Dosage: 2.5 MG, 1X/DAY (0.5-0-0-0, AFTER MEAL)
  3. METHOTREXATE [Concomitant]
     Active Substance: METHOTREXATE
     Dosage: 20 MG, WEEKLY (BEFORE MEAL)
  4. METHOTREXATE [Concomitant]
     Active Substance: METHOTREXATE
     Dosage: 10 MG (2 HOURSE AFTER MEAL ON SUNDAY 1 TABLET, ON MONDAY 1 TABLET)
  5. HYDROXYCHLOROQUINE SULFATE [Concomitant]
     Active Substance: HYDROXYCHLOROQUINE SULFATE
     Dosage: 200 MG, 1X/DAY (1-0-0-0, AFTER MEAL)
  6. FOLIC ACID [Concomitant]
     Active Substance: FOLIC ACID
     Dosage: 5 MG, 1X/DAY
  7. PANADOL [Concomitant]
     Active Substance: ACETAMINOPHEN
     Dosage: 1000 MG, 1X/DAY (AFTER MEAL, WHEN REQUIRED)
  8. DICLOFENAC DIETHYLAMINE [Concomitant]
     Active Substance: DICLOFENAC DIETHYLAMINE
     Dosage: 1-0-0-0, APPLY AT EFFECTED AREA IN THE MORNING AS NEEDED
     Route: 061
  9. ACECLOFENAC [Concomitant]
     Active Substance: ACECLOFENAC
     Dosage: 100 MG, 2X/DAY (1-0-1-0, AFTER MEAL)
  10. CELL [Concomitant]
     Dosage: 200000 IU, MONTHLY (AFTER MEAL, 3 MONTHS)
  11. Risek [Concomitant]
     Dosage: 20 MG, 2X/DAY (1-0-1-0, BEFORE MEAL)
  12. Risek [Concomitant]
     Dosage: 20 MG, 2X/DAY (1-0-1-0, BEFORE MEAL)

REACTIONS (4)
  - Blood glucose increased [Unknown]
  - Blood pressure increased [Unknown]
  - Condition aggravated [Unknown]
  - Tenosynovitis stenosans [Unknown]
